FAERS Safety Report 8019958-7 (Version None)
Quarter: 2011Q4

REPORT INFORMATION
  Report Type: 
  Country: None (occurrence: None)
  Receive Date: 20111228
  Receipt Date: 20111213
  Transmission Date: 20120403
  Serious: Yes (Hospitalization, Other)
  Sender: FDA-Public Use
  Company Number: DSJ-2011-17064

PATIENT
  Sex: Female

DRUGS (6)
  1. UNKNOWN [Suspect]
  2. CLOXAZOLAM [Suspect]
     Indication: PRODUCT USED FOR UNKNOWN INDICATION
     Dosage: 1 MG, PER ORAL
     Route: 048
     Dates: start: 20110101, end: 20110101
  3. BENICAR [Suspect]
     Indication: HYPERTENSION
     Dosage: 20 MG (20 MG, 1 IN 1D), PER ORAL 40 MG (20 MG, 2 IN 1 D), PER ORAL
     Route: 048
     Dates: start: 20110101
  4. BENICAR [Suspect]
     Indication: HYPERTENSION
     Dosage: 20 MG (20 MG, 1 IN 1D), PER ORAL 40 MG (20 MG, 2 IN 1 D), PER ORAL
     Route: 048
     Dates: end: 20110101
  5. ATENOLOL [Suspect]
     Indication: HYPERTENSION
     Dosage: 50 MG, PER ORAL
     Route: 048
     Dates: start: 20110101
  6. SPIRONOLACTONE [Suspect]
     Indication: HYPERTENSION
     Dosage: 25 MG, PER ORAL
     Route: 048
     Dates: start: 20110101

REACTIONS (12)
  - MALAISE [None]
  - INTRAOCULAR PRESSURE INCREASED [None]
  - SOMNOLENCE [None]
  - EYE PAIN [None]
  - CATARACT [None]
  - BLOOD PRESSURE SYSTOLIC INCREASED [None]
  - SPEECH DISORDER [None]
  - FATIGUE [None]
  - THERAPY CESSATION [None]
  - BLINDNESS [None]
  - DRUG INEFFECTIVE [None]
  - SENSATION OF HEAVINESS [None]
